FAERS Safety Report 14354883 (Version 2)
Quarter: 2018Q1

REPORT INFORMATION
  Report Type: Report from Study
  Country: IT (occurrence: IT)
  Receive Date: 20180105
  Receipt Date: 20180320
  Transmission Date: 20180509
  Serious: Yes (Other)
  Sender: FDA-Public Use
  Company Number: IT-ROCHE-2048763

PATIENT
  Age: 54 Year
  Sex: Male
  Weight: 85 kg

DRUGS (11)
  1. PREDNISONE. [Concomitant]
     Active Substance: PREDNISONE
     Indication: RASH MACULO-PAPULAR
     Route: 048
     Dates: start: 20171010
  2. VEMURAFENIB. [Suspect]
     Active Substance: VEMURAFENIB
     Indication: MALIGNANT MELANOMA
     Dosage: FOUR, 240 MG TABLETS ON DAYS 1 TO 21 FOLLOWED BY ON DAYS 22 TO 28 (AS PER PROTOCOL)?DATE OF MOST REC
     Route: 048
     Dates: start: 20170904
  3. DIPROSONE CREAM [Concomitant]
     Indication: RASH MACULO-PAPULAR
     Dosage: DOSE: 1 OTHER
     Route: 061
     Dates: start: 20170915
  4. AZOPT [Concomitant]
     Active Substance: BRINZOLAMIDE
     Indication: GLAUCOMA
     Route: 065
     Dates: start: 20150401
  5. BLINDED ATEZOLIZUMAB [Suspect]
     Active Substance: ATEZOLIZUMAB
     Indication: MALIGNANT MELANOMA
     Dosage: ON DAY 1 AND 15 (AS PER PROTOCOL)?DATE OF MOST RECENT DOSE OF BLINDED ATEZOLIZUMAB PRIOR TO AE AND S
     Route: 042
     Dates: start: 20171016
  6. ALPHAGAN P [Concomitant]
     Active Substance: BRIMONIDINE TARTRATE
     Indication: GLAUCOMA
     Route: 065
     Dates: start: 20150401
  7. OMEPRAZOLE. [Concomitant]
     Active Substance: OMEPRAZOLE
     Indication: GASTRITIS PROPHYLAXIS
     Route: 065
     Dates: start: 20170918
  8. VASELIN [Concomitant]
     Indication: RASH MACULO-PAPULAR
     Dosage: DOSE: 1 OTHER
     Route: 061
     Dates: start: 20170915
  9. COBIMETINIB. [Suspect]
     Active Substance: COBIMETINIB
     Indication: MALIGNANT MELANOMA
     Dosage: THREE, 20 MG TABLETS ON DAYS 1 TO 21 (AS PER PROTOCOL)? DATE OF MOST RECENT DOSE OF COBIMETINIB (60
     Route: 048
     Dates: start: 20170904
  10. MYCOSTATIN [Concomitant]
     Active Substance: NYSTATIN
     Indication: MUCOSAL INFLAMMATION
     Dosage: DOSE: 2 OTHER
     Route: 048
     Dates: start: 20170920
  11. OLIVE OIL [Concomitant]
     Active Substance: OLIVE OIL
     Indication: RASH MACULO-PAPULAR
     Dosage: DOSE: 1 OTHER
     Route: 061
     Dates: start: 20170915

REACTIONS (2)
  - Retinal detachment [Recovered/Resolved]
  - Pneumonitis [Unknown]

NARRATIVE: CASE EVENT DATE: 20171229
